FAERS Safety Report 24454306 (Version 2)
Quarter: 2024Q4

REPORT INFORMATION
  Report Type: Report from Study
  Country: US (occurrence: US)
  Receive Date: 20241017
  Receipt Date: 20241018
  Transmission Date: 20250115
  Serious: No
  Sender: ROCHE
  Company Number: US-ROCHE-3462686

PATIENT
  Age: 31 Year
  Sex: Female

DRUGS (11)
  1. RITUXAN [Suspect]
     Active Substance: RITUXIMAB
     Indication: Granulomatosis with polyangiitis
     Route: 041
  2. ALBUTEROL [Concomitant]
     Active Substance: ALBUTEROL
     Dosage: INHALE INTO LUNGS AS REQUIRED
  3. BREO ELLIPTA [Concomitant]
     Active Substance: FLUTICASONE FUROATE\VILANTEROL TRIFENATATE
  4. BUPROPION [Concomitant]
     Active Substance: BUPROPION
     Dosage: 150 MG SR TABLET ONE BID
  5. CETIRIZINE HCL [Concomitant]
     Active Substance: CETIRIZINE HYDROCHLORIDE
     Dosage: TAKE BY MOUTH
  6. FLUTICASONE FUROATE [Concomitant]
     Active Substance: FLUTICASONE FUROATE
     Dosage: 200-25 MCG INHALE 1 PUFF INTO LUNGS
  7. FOLIC ACID [Concomitant]
     Active Substance: FOLIC ACID
     Dosage: 1 MG TABLET BY MOUTH DAILY
  8. HYDROXYZINE [Concomitant]
     Active Substance: HYDROXYZINE HYDROCHLORIDE
     Dosage: 25 MG TABLET AS NEEDED (50 MG)
  9. METHOTREXATE [Concomitant]
     Active Substance: METHOTREXATE
     Dosage: 2.5 MG TABLET BY MOUTH ONCE A WEEK
  10. PREDNISONE [Concomitant]
     Active Substance: PREDNISONE
     Dosage: 1 MG TABLET BY MOUTH DAILY
  11. PREDNISONE [Concomitant]
     Active Substance: PREDNISONE
     Dosage: 5 MG TABLET BY MOUTH DAILY

REACTIONS (2)
  - Off label use [Unknown]
  - No adverse event [Unknown]
